FAERS Safety Report 7592176-2 (Version None)
Quarter: 2011Q3

REPORT INFORMATION
  Report Type: 
  Country: None (occurrence: None)
  Receive Date: 20110705
  Receipt Date: 20110705
  Transmission Date: 20111222
  Serious: Yes (Life-Threatening, Other)
  Sender: FDA-Public Use
  Company Number: None

PATIENT
  Age: 29 Year
  Sex: Male
  Weight: 99.7913 kg

DRUGS (1)
  1. MECLIZINE [Suspect]
     Indication: TINNITUS
     Dosage: 12.5 MG 5 TIMES A  DAY PO (TOOK IT ONCE)
     Route: 048
     Dates: start: 20110430, end: 20110430

REACTIONS (1)
  - HEART RATE INCREASED [None]
